FAERS Safety Report 18630430 (Version 2)
Quarter: 2021Q2

REPORT INFORMATION
  Report Type: Spontaneous
  Country: DE (occurrence: DE)
  Receive Date: 20201218
  Receipt Date: 20210409
  Transmission Date: 20210717
  Serious: Yes (Life-Threatening)
  Sender: FDA-Public Use
  Company Number: DE-AUROBINDO-AUR-APL-2019-109248

PATIENT
  Age: 63 Year
  Sex: Female
  Weight: 64 kg

DRUGS (37)
  1. FOLINIC ACID [Suspect]
     Active Substance: LEUCOVORIN
     Dosage: 540 MILLIGRAM
     Route: 065
     Dates: start: 20190401
  2. FLUOROURACIL. [Suspect]
     Active Substance: FLUOROURACIL
     Indication: COLORECTAL CANCER METASTATIC
     Dosage: 700 MILLIGRAM
     Route: 040
     Dates: start: 20181210
  3. FLUOROURACIL. [Suspect]
     Active Substance: FLUOROURACIL
     Dosage: 3245 MILLIGRAM
     Route: 042
     Dates: start: 20190114
  4. FLUOROURACIL. [Suspect]
     Active Substance: FLUOROURACIL
     Dosage: 3285 MILLIGRAM
     Route: 042
     Dates: start: 20190513
  5. VECTIBIX [Suspect]
     Active Substance: PANITUMUMAB
     Dosage: 355 MILLIGRAM
     Route: 042
     Dates: start: 20190114
  6. VECTIBIX [Suspect]
     Active Substance: PANITUMUMAB
     Dosage: 360 MILLIGRAM
     Route: 042
     Dates: start: 20190225
  7. VECTIBIX [Suspect]
     Active Substance: PANITUMUMAB
     Dosage: 380 MILLIGRAM
     Route: 042
     Dates: start: 20190729
  8. FOLINIC ACID [Suspect]
     Active Substance: LEUCOVORIN
     Indication: COLORECTAL CANCER METASTATIC
     Dosage: 700 MILLIGRAM
     Route: 065
     Dates: start: 20181210
  9. FOLINIC ACID [Suspect]
     Active Substance: LEUCOVORIN
     Dosage: 555 MILLIGRAM
     Route: 065
     Dates: start: 20190729
  10. FOLINIC ACID [Suspect]
     Active Substance: LEUCOVORIN
     Dosage: 550 MILLIGRAM
     Route: 065
     Dates: start: 20190826
  11. IRINOTECAN [Suspect]
     Active Substance: IRINOTECAN
     Dosage: 315 MILLIGRAM
     Route: 065
     Dates: start: 20181210
  12. IRINOTECAN [Suspect]
     Active Substance: IRINOTECAN
     Dosage: 230 MILLIGRAM
     Route: 065
     Dates: start: 20190910
  13. IRINOTECAN [Suspect]
     Active Substance: IRINOTECAN
     Dosage: 250 MILLIGRAM
     Route: 065
     Dates: start: 20191112
  14. FLUOROURACIL. [Suspect]
     Active Substance: FLUOROURACIL
     Dosage: 3300 MILLIGRAM
     Route: 042
     Dates: start: 20190527
  15. FOLINIC ACID [Suspect]
     Active Substance: LEUCOVORIN
     Dosage: 355 MILLIGRAM
     Route: 065
     Dates: start: 20190211
  16. FOLINIC ACID [Suspect]
     Active Substance: LEUCOVORIN
     Dosage: 555 MILLIGRAM
     Route: 065
     Dates: start: 20191112
  17. VECTIBIX [Suspect]
     Active Substance: PANITUMUMAB
     Indication: COLORECTAL CANCER METASTATIC
     Dosage: 385 MILLIGRAM
     Route: 042
     Dates: start: 20181210
  18. VECTIBIX [Suspect]
     Active Substance: PANITUMUMAB
     Dosage: 370 MILLIGRAM
     Route: 042
     Dates: start: 20190527
  19. FLUOROURACIL. [Suspect]
     Active Substance: FLUOROURACIL
     Dosage: 4200 MILLIGRAM
     Route: 042
     Dates: start: 20181224
  20. FLUOROURACIL. [Suspect]
     Active Substance: FLUOROURACIL
     Dosage: 3340 MILLIGRAM
     Route: 042
     Dates: start: 20191112
  21. FOLINIC ACID [Suspect]
     Active Substance: LEUCOVORIN
     Dosage: 540 MILLIGRAM
     Route: 065
     Dates: start: 20190114
  22. FOLINIC ACID [Suspect]
     Active Substance: LEUCOVORIN
     Dosage: 560 MILLIGRAM
     Route: 065
     Dates: start: 20191126
  23. FOLINIC ACID [Suspect]
     Active Substance: LEUCOVORIN
     Dosage: 545 MILLIGRAM
     Route: 065
     Dates: start: 20190513
  24. FOLINIC ACID [Suspect]
     Active Substance: LEUCOVORIN
     Dosage: 520 MILLIGRAM
     Route: 065
     Dates: start: 20190910
  25. IRINOTECAN [Suspect]
     Active Substance: IRINOTECAN
     Dosage: 245 MILLIGRAM
     Route: 065
     Dates: start: 20190114
  26. FLUOROURACIL. [Suspect]
     Active Substance: FLUOROURACIL
     Dosage: 3115 MILLIGRAM
     Route: 042
     Dates: start: 20190910
  27. FLUOROURACIL. [Suspect]
     Active Substance: FLUOROURACIL
     Dosage: 3380 MILLIGRAM
     Route: 042
     Dates: start: 20191126
  28. MCP?RATIOPHARM [Concomitant]
     Active Substance: METOCLOPRAMIDE HYDROCHLORIDE
     Indication: VOMITING
     Dosage: UNK MILLILITER, AS NECESSARY (10 MG/2 ML)
     Route: 048
     Dates: start: 20181212
  29. FLUOROURACIL. [Suspect]
     Active Substance: FLUOROURACIL
     Dosage: 3265 MILLIGRAM
     Route: 042
     Dates: start: 20190225
  30. FLUOROURACIL. [Suspect]
     Active Substance: FLUOROURACIL
     Dosage: 3340 MILLIGRAM
     Route: 042
     Dates: start: 20190729
  31. FOLINIC ACID [Suspect]
     Active Substance: LEUCOVORIN
     Dosage: 545 MILLIGRAM
     Route: 065
     Dates: start: 20190225
  32. FOLINIC ACID [Suspect]
     Active Substance: LEUCOVORIN
     Dosage: 550 MILLIGRAM
     Route: 065
     Dates: start: 20190527
  33. IRINOTECAN [Suspect]
     Active Substance: IRINOTECAN
     Dosage: 255 MILLIGRAM
     Route: 065
     Dates: start: 20191126
  34. FLUOROURACIL. [Suspect]
     Active Substance: FLUOROURACIL
     Dosage: 3245 MILLIGRAM
     Route: 042
     Dates: start: 20190401
  35. VECTIBIX [Suspect]
     Active Substance: PANITUMUMAB
     Dosage: 365 MILLIGRAM
     Route: 042
     Dates: start: 20190513
  36. METRONIDAZOL?RATIOPHARM [Concomitant]
     Indication: RASH
     Dosage: UNK UNK, AS NECESSARY
     Route: 062
     Dates: start: 20190125
  37. TETRACYCLIN WOLFF [Concomitant]
     Indication: CHEMOTHERAPY
     Dosage: 250 MILLIGRAM, ONCE A DAY
     Route: 048
     Dates: start: 20181207

REACTIONS (2)
  - Rash [Recovered/Resolved]
  - Dermatitis acneiform [Recovered/Resolved]

NARRATIVE: CASE EVENT DATE: 20190909
